FAERS Safety Report 8114876-8 (Version None)
Quarter: 2012Q1

REPORT INFORMATION
  Report Type: 
  Country: None (occurrence: None)
  Receive Date: 20120123
  Receipt Date: 20120107
  Transmission Date: 20120608
  Serious: Yes (Death, Life-Threatening, Hospitalization, Other)
  Sender: FDA-Public Use
  Company Number: 2012030755

PATIENT
  Age: 79 Year
  Sex: Female

DRUGS (28)
  1. PRIVIGEN [Suspect]
  2. ALBUREX 5% (ALBUMIN HUMAN) [Suspect]
     Dosage: INTRAVENOUS (NOT OTHERWISE SPECIFIED)
     Route: 042
     Dates: start: 20111219
  3. ALBUREX 25% (ALBUMIN HUMAN) [Suspect]
     Dosage: INTRAVENOUS (NOT OTHERWISE SPECIFIED)
     Route: 042
     Dates: start: 20111217
  4. ALBUREX 25% (ALBUMIN HUMAN) [Suspect]
     Dosage: INTRAVENOUS (NOT OTHERWISE SPECIFIED)
     Route: 042
     Dates: start: 20111212
  5. ALBUREX 25% (ALBUMIN HUMAN) [Suspect]
     Dosage: INTRAVENOUS (NOT OTHERWISE SPECIFIED)
     Route: 042
     Dates: start: 20111216
  6. ALBUREX 25% (ALBUMIN HUMAN) [Suspect]
     Dosage: INTRAVENOUS (NOT OTHERWISE SPECIFIED)
     Route: 042
     Dates: start: 20111211
  7. ALBUREX 25% (ALBUMIN HUMAN) [Suspect]
     Dosage: INTRAVENOUS (NOT OTHERWISE SPECIFIED)
     Route: 042
     Dates: start: 20111219
  8. ALBUREX 25% (ALBUMIN HUMAN) [Suspect]
     Dosage: INTRAVENOUS (NOT OTHERWISE SPECIFIED)
     Route: 042
     Dates: start: 20111213
  9. ALBUREX 25% (ALBUMIN HUMAN) [Suspect]
     Dosage: INTRAVENOUS (NOT OTHERWISE SPECIFIED)
     Route: 042
     Dates: start: 20111216
  10. VASOPRESSIN (VASOPRESSIN) [Concomitant]
  11. FENTANYL [Concomitant]
  12. HYDRALAZINE HCL [Concomitant]
  13. PRIVIGEN [Suspect]
     Dates: start: 20111217
  14. PRIVIGEN [Suspect]
     Dates: start: 20111216
  15. PRIVIGEN [Suspect]
     Dates: start: 20111216
  16. PRIVIGEN [Suspect]
     Dates: start: 20111219
  17. AMPICILLIN [Concomitant]
  18. METOCLOPRAMIDE [Concomitant]
  19. SOLU-MEDROL [Concomitant]
  20. PRIVIGEN [Suspect]
  21. HALOPERIDOL [Concomitant]
  22. MAGNESIUM SULPHATE /00167401/ (MAGNESIUM SULFATE) [Concomitant]
  23. CIPROFLOXACIN [Concomitant]
  24. DOPAMINE HCL [Concomitant]
  25. METRONIDAZOLE [Concomitant]
  26. POTASSIUM CHLORIDE [Concomitant]
  27. PRIVIGEN [Suspect]
     Indication: IDIOPATHIC THROMBOCYTOPENIC PURPURA
     Dosage: 135 G, 2.7 G/KG WITHIN LESS THAN 24 HOURS, INTRAVENOUS (NOT OTHERWISE SPECIFIED)
     Route: 042
     Dates: start: 20111206
  28. PANTOPRAZOLE [Concomitant]

REACTIONS (12)
  - POLYCHROMASIA [None]
  - CONDITION AGGRAVATED [None]
  - INTESTINAL ISCHAEMIA [None]
  - HEPATIC ISCHAEMIA [None]
  - HYPOPERFUSION [None]
  - ISCHAEMIA [None]
  - AUTOIMMUNE THROMBOCYTOPENIA [None]
  - HAEMOLYTIC ANAEMIA [None]
  - HAPTOGLOBIN ABNORMAL [None]
  - RESPIRATORY FAILURE [None]
  - HAEMOGLOBIN DECREASED [None]
  - RENAL ISCHAEMIA [None]
